FAERS Safety Report 22521814 (Version 1)
Quarter: 2023Q2

REPORT INFORMATION
  Report Type: Report from Study
  Country: DO (occurrence: DO)
  Receive Date: 20230605
  Receipt Date: 20230605
  Transmission Date: 20230722
  Serious: Yes (Hospitalization)
  Sender: FDA-Public Use
  Company Number: DO-002147023-NVSC2023DO092514

PATIENT
  Age: 71 Year
  Sex: Male

DRUGS (1)
  1. SECUKINUMAB [Suspect]
     Active Substance: SECUKINUMAB
     Indication: Psoriasis
     Dosage: 300 MG, QMO
     Route: 058
     Dates: start: 20220309

REACTIONS (5)
  - Fall [Not Recovered/Not Resolved]
  - Face injury [Unknown]
  - Blood glucose increased [Recovering/Resolving]
  - Illness [Recovering/Resolving]
  - Injury [Not Recovered/Not Resolved]

NARRATIVE: CASE EVENT DATE: 20230417
